FAERS Safety Report 14870058 (Version 1)
Quarter: 2018Q2

REPORT INFORMATION
  Report Type: Spontaneous
  Country: ZA (occurrence: ZA)
  Receive Date: 20180509
  Receipt Date: 20180509
  Transmission Date: 20180711
  Serious: Yes (Hospitalization, Other)
  Sender: FDA-Public Use
  Company Number: ZA-PFIZER INC-2018187668

PATIENT
  Age: 70 Year
  Sex: Female

DRUGS (8)
  1. EUTHYROX [Suspect]
     Active Substance: LEVOTHYROXINE SODIUM
     Dosage: 25 MG, UNK
  2. ALTOSEC /00661201/ [Suspect]
     Active Substance: OMEPRAZOLE
     Dosage: 20 MG, UNK
  3. ASPAVOR [Suspect]
     Active Substance: ATORVASTATIN
     Dosage: 20 MG, UNK
  4. ZANIDIP [Suspect]
     Active Substance: LERCANIDIPINE HYDROCHLORIDE
     Dosage: 20 MG, UNK
  5. CARZIN XL [Suspect]
     Active Substance: DOXAZOSIN MESYLATE
     Dosage: 4 MG, UNK
  6. ASACOL [Suspect]
     Active Substance: MESALAMINE
     Dosage: 400 MG, UNK
  7. ONBREZ BREEZHALER [Suspect]
     Active Substance: INDACATEROL
     Dosage: 150 MCG, UNK
  8. ULSANIC [Suspect]
     Active Substance: SUCRALFATE
     Dosage: 1000 MG, UNK

REACTIONS (2)
  - Renal failure [Unknown]
  - Infectious colitis [Unknown]
